FAERS Safety Report 10290528 (Version 1)
Quarter: 2014Q3

REPORT INFORMATION
  Report Type: Spontaneous
  Country: FR (occurrence: FR)
  Receive Date: 20140710
  Receipt Date: 20140710
  Transmission Date: 20150326
  Serious: Yes (Hospitalization)
  Sender: FDA-Public Use
  Company Number: FR-PFIZER INC-2014186376

PATIENT
  Age: 25 Year
  Sex: Female

DRUGS (10)
  1. BECONASE AQ [Concomitant]
     Active Substance: BECLOMETHASONE DIPROPIONATE MONOHYDRATE
     Indication: PYREXIA
  2. BIPROFENID [Suspect]
     Active Substance: KETOPROFEN
     Dosage: UNK
     Route: 048
     Dates: start: 20140326, end: 201403
  3. BECONASE AQ [Concomitant]
     Active Substance: BECLOMETHASONE DIPROPIONATE MONOHYDRATE
     Indication: RHINORRHOEA
  4. OMEPRAZOLE. [Concomitant]
     Active Substance: OMEPRAZOLE
     Dosage: UNK
     Dates: start: 20140326
  5. MIOREL [Concomitant]
     Active Substance: ORPHENADRINE
     Dosage: UNK
     Dates: start: 20140326
  6. POLERY [Concomitant]
     Active Substance: CODEINE\SISYMBRIUM OFFICINALE WHOLE
     Dosage: UNK
     Dates: start: 20140327
  7. RHINADVIL [Suspect]
     Active Substance: IBUPROFEN\PSEUDOEPHEDRINE HYDROCHLORIDE
     Indication: COUGH
     Dosage: UNK
     Route: 048
     Dates: start: 20140322, end: 201403
  8. RHINADVIL [Suspect]
     Active Substance: IBUPROFEN\PSEUDOEPHEDRINE HYDROCHLORIDE
     Indication: PYREXIA
  9. BECONASE AQ [Concomitant]
     Active Substance: BECLOMETHASONE DIPROPIONATE MONOHYDRATE
     Indication: COUGH
     Dosage: UNK
     Dates: start: 20140322
  10. RHINADVIL [Suspect]
     Active Substance: IBUPROFEN\PSEUDOEPHEDRINE HYDROCHLORIDE
     Indication: RHINORRHOEA

REACTIONS (9)
  - Condition aggravated [Unknown]
  - Pleurisy [Unknown]
  - Infection [Recovering/Resolving]
  - Myalgia [Unknown]
  - Septic shock [Unknown]
  - Cough [Unknown]
  - Chest pain [Unknown]
  - Vomiting [Unknown]
  - Diarrhoea [Unknown]

NARRATIVE: CASE EVENT DATE: 20140326
